FAERS Safety Report 7254572-2 (Version None)
Quarter: 2011Q1

REPORT INFORMATION
  Report Type: 
  Country: None (occurrence: None)
  Receive Date: 20110129
  Receipt Date: 20100224
  Transmission Date: 20110831
  Serious: No
  Sender: FDA-Public Use
  Company Number: US-ABBOTT-10P-163-0628402-00

PATIENT
  Sex: Female
  Weight: 59.02 kg

DRUGS (2)
  1. HUMIRA [Suspect]
     Indication: COLITIS ULCERATIVE
     Dates: start: 20080801
  2. HUMIRA [Suspect]

REACTIONS (3)
  - CROHN'S DISEASE [None]
  - FREQUENT BOWEL MOVEMENTS [None]
  - GASTROINTESTINAL PAIN [None]
